FAERS Safety Report 6981806-1 (Version None)
Quarter: 2010Q3

REPORT INFORMATION
  Report Type: 
  Country: None (occurrence: None)
  Receive Date: 20100914
  Receipt Date: 20091119
  Transmission Date: 20110219
  Serious: Yes (Other)
  Sender: FDA-Public Use
  Company Number: US-PFIZER INC-2009269678

PATIENT
  Sex: Female
  Weight: 50.794 kg

DRUGS (3)
  1. LYRICA [Suspect]
     Indication: EPILEPSY
     Dosage: 150 MG, 1X/DAY
     Route: 048
     Dates: start: 20090801
  2. ZONEGRAN [Concomitant]
     Indication: CONVULSION
     Dosage: 200 MG, 1X/DAY
     Route: 048
  3. ELAVIL [Concomitant]
     Indication: DEPRESSION
     Dosage: 150 MG, 1X/DAY
     Route: 048
     Dates: start: 19990101

REACTIONS (2)
  - DIPLOPIA [None]
  - HALLUCINATION [None]
